FAERS Safety Report 4306020-X (Version None)
Quarter: 2004Q1

REPORT INFORMATION
  Report Type: 
  Country: None (occurrence: None)
  Receive Date: 20040225
  Receipt Date: 20040210
  Transmission Date: 20041129
  Serious: Yes (Life-Threatening, Hospitalization, Other)
  Sender: FDA-Public Use
  Company Number: USA040259164

PATIENT
  Sex: Male

DRUGS (7)
  1. CIALIS [Suspect]
  2. CELEBREX [Concomitant]
  3. EFFEXOR [Concomitant]
  4. NORVASC [Concomitant]
  5. CLOZAPINE [Concomitant]
  6. ADVAIR DISKUS 100/50 [Concomitant]
  7. RECENEPRIAL [Concomitant]

REACTIONS (4)
  - ANAPHYLACTIC SHOCK [None]
  - COMA [None]
  - DRUG INTERACTION [None]
  - SWELLING FACE [None]
